FAERS Safety Report 17156727 (Version 2)
Quarter: 2020Q1

REPORT INFORMATION
  Report Type: Spontaneous
  Country: BR (occurrence: BR)
  Receive Date: 20191216
  Receipt Date: 20200213
  Transmission Date: 20200409
  Serious: Yes (Death, Other)
  Sender: FDA-Public Use
  Company Number: BR-AMGEN-BRASP2013031043

PATIENT
  Age: 68 Year
  Sex: Male
  Weight: 94 kg

DRUGS (3)
  1. ENBREL [Suspect]
     Active Substance: ETANERCEPT
     Indication: PSORIASIS
     Dosage: 50 MILLIGRAM, QWK
     Route: 065
     Dates: start: 201211
  2. CAPTOPRIL. [Concomitant]
     Active Substance: CAPTOPRIL
     Dosage: 150 MILLIGRAM, QD  (6 TABLETS OF 25MG PER DAY)
  3. GLIBENCLAMIDE [Concomitant]
     Active Substance: GLYBURIDE
     Dosage: 100 MILLIGRAM, QD (4 TABLETS OF 25MG PER DAY)

REACTIONS (2)
  - Neoplasm malignant [Fatal]
  - Bladder disorder [Unknown]
